FAERS Safety Report 8928761 (Version 1)
Quarter: 2012Q4

REPORT INFORMATION
  Report Type: Report from Study
  Country: US (occurrence: US)
  Receive Date: 20121128
  Receipt Date: 20121128
  Transmission Date: 20130627
  Serious: Yes (Hospitalization)
  Sender: FDA-Public Use
  Company Number: US-ASTELLAS-2012US011324

PATIENT
  Age: 52 Year
  Sex: Male
  Weight: 52 kg

DRUGS (2)
  1. ERLOTINIB TABLET [Suspect]
     Indication: ADENOCARCINOMA PANCREAS
     Dosage: 100 mg, UID/QD
     Route: 048
     Dates: start: 20121030, end: 20121112
  2. GEMCITABINE HYDROCHLORIDE [Suspect]
     Indication: ADENOCARCINOMA PANCREAS
     Dosage: 1000 mg/m2, Weeks 1-3
     Route: 042
     Dates: start: 20121030, end: 20121106

REACTIONS (2)
  - Hyponatraemia [Unknown]
  - Liver abscess [Not Recovered/Not Resolved]
